FAERS Safety Report 16471629 (Version 1)
Quarter: 2019Q2

REPORT INFORMATION
  Report Type: Spontaneous
  Country: ES (occurrence: ES)
  Receive Date: 20190624
  Receipt Date: 20190624
  Transmission Date: 20190711
  Serious: Yes (Hospitalization)
  Sender: FDA-Public Use
  Company Number: ES-TEVA-2019-ES-1067407

PATIENT
  Age: 79 Year
  Sex: Male

DRUGS (2)
  1. AMIODARONA (392A) [Suspect]
     Active Substance: AMIODARONE
     Route: 065
     Dates: start: 20141107
  2. BISOPROLOL [Suspect]
     Active Substance: BISOPROLOL
     Route: 065
     Dates: start: 20140226

REACTIONS (1)
  - Atrioventricular block complete [Recovered/Resolved]

NARRATIVE: CASE EVENT DATE: 20190209
